FAERS Safety Report 4918797-0 (Version None)
Quarter: 2006Q1

REPORT INFORMATION
  Report Type: 
  Country: None (occurrence: None)
  Receive Date: 20060221
  Receipt Date: 20060221
  Transmission Date: 20060701
  Serious: Yes (Other)
  Sender: FDA-Public Use
  Company Number: None

PATIENT
  Sex: Female
  Weight: 63.5036 kg

DRUGS (1)
  1. ORTHO EVRA [Suspect]
     Indication: CONTRACEPTION
     Dosage: 1 PATCH  WEEKLY
     Dates: start: 20020901, end: 20040701

REACTIONS (4)
  - AMENORRHOEA [None]
  - DRUG TOXICITY [None]
  - INFERTILITY [None]
  - MENSTRUATION IRREGULAR [None]
